FAERS Safety Report 8746247 (Version 3)
Quarter: 2013Q1

REPORT INFORMATION
  Report Type: Spontaneous
  Country: US (occurrence: US)
  Receive Date: 20120827
  Receipt Date: 20130103
  Transmission Date: 20140127
  Serious: Yes (Hospitalization)
  Sender: FDA-Public Use
  Company Number: US-BAYER-2012-086230

PATIENT
  Age: 31 Year
  Sex: Female
  Weight: 94.79 kg

DRUGS (8)
  1. YAZ [Suspect]
     Dosage: UNK
     Dates: start: 201008
  2. VICODIN ES [Concomitant]
     Indication: PAIN
     Dosage: UNK, EVERY 6 HOURS
  3. ANCEF [Concomitant]
  4. AMITRIPTYLINE [Concomitant]
     Dosage: 25 MG, HS
  5. LIPITOR [Concomitant]
  6. CEPHALEXIN [Concomitant]
     Dosage: 500 MG, UNK
  7. PEPCID [Concomitant]
  8. POTASSIUM CHLORIDE [Concomitant]

REACTIONS (2)
  - Cerebrovascular accident [Recovering/Resolving]
  - Injury [Recovering/Resolving]
